FAERS Safety Report 8571480-5 (Version None)
Quarter: 2012Q3

REPORT INFORMATION
  Report Type: 
  Country: None (occurrence: None)
  Receive Date: 20120806
  Receipt Date: 20120727
  Transmission Date: 20120928
  Serious: No
  Sender: FDA-Public Use
  Company Number: US-BAYER-2012-076615

PATIENT
  Age: 13 Year
  Sex: Female
  Weight: 47.619 kg

DRUGS (1)
  1. ALEVE (CAPLET) [Suspect]
     Indication: TOOTHACHE
     Dosage: 3 DF, ONCE
     Route: 048
     Dates: start: 20120727, end: 20120727

REACTIONS (1)
  - NO ADVERSE EVENT [None]
